FAERS Safety Report 5342402-5 (Version None)
Quarter: 2007Q2

REPORT INFORMATION
  Report Type: 
  Country: None (occurrence: None)
  Receive Date: 20070601
  Receipt Date: 20070522
  Transmission Date: 20071010
  Serious: Yes (Life-Threatening)
  Sender: FDA-Public Use
  Company Number: IT-ROCHE-498681

PATIENT
  Age: 25 Year
  Sex: Female

DRUGS (2)
  1. ROCEPHIN [Suspect]
     Indication: C-REACTIVE PROTEIN INCREASED
     Dosage: FORM: VIAL.
     Route: 042
     Dates: start: 20070516, end: 20070516
  2. OMEPRAZOLE [Concomitant]

REACTIONS (3)
  - ANAPHYLACTIC SHOCK [None]
  - OEDEMA [None]
  - RESPIRATORY FAILURE [None]
